FAERS Safety Report 22657841 (Version 1)
Quarter: 2023Q2

REPORT INFORMATION
  Report Type: Spontaneous
  Country: US (occurrence: US)
  Receive Date: 20230630
  Receipt Date: 20230630
  Transmission Date: 20230722
  Serious: No
  Sender: FDA-Public Use
  Company Number: US-Accord-301107

PATIENT
  Age: 66 Year
  Sex: Female
  Weight: 77.11 kg

DRUGS (2)
  1. CLONAZEPAM [Suspect]
     Active Substance: CLONAZEPAM
     Indication: Panic attack
     Dosage: STRENGTH:  3MG
     Route: 048
  2. ASPIRIN [Concomitant]
     Active Substance: ASPIRIN

REACTIONS (1)
  - Wrong technique in product usage process [Unknown]
